FAERS Safety Report 19098801 (Version 2)
Quarter: 2021Q2

REPORT INFORMATION
  Report Type: Spontaneous
  Country: US (occurrence: US)
  Receive Date: 20210406
  Receipt Date: 20210419
  Transmission Date: 20210717
  Serious: No
  Sender: FDA-Public Use
  Company Number: NVSC2021US075344

PATIENT
  Sex: Female

DRUGS (2)
  1. TAFINLAR [Suspect]
     Active Substance: DABRAFENIB MESYLATE
     Indication: THYROID CANCER
     Dosage: 150 MG, BID
     Route: 048
     Dates: start: 202103
  2. MEKINIST [Suspect]
     Active Substance: TRAMETINIB DIMETHYL SULFOXIDE
     Indication: THYROID CANCER
     Dosage: 2 MG, QD
     Route: 048
     Dates: start: 202103

REACTIONS (8)
  - Vomiting [Unknown]
  - Dizziness [Unknown]
  - Weight decreased [Unknown]
  - Nausea [Unknown]
  - Chills [Unknown]
  - Papule [Unknown]
  - Motion sickness [Unknown]
  - Dry mouth [Unknown]
